FAERS Safety Report 23043149 (Version 1)
Quarter: 2023Q4

REPORT INFORMATION
  Report Type: Spontaneous
  Country: US (occurrence: US)
  Receive Date: 20231009
  Receipt Date: 20231009
  Transmission Date: 20240110
  Serious: No
  Sender: FDA-Public Use
  Company Number: US-STRIDES ARCOLAB LIMITED-2022SP014894

PATIENT
  Sex: Female
  Weight: 65.76 kg

DRUGS (9)
  1. BUSPIRONE HYDROCHLORIDE [Suspect]
     Active Substance: BUSPIRONE HYDROCHLORIDE
     Indication: Anxiety
     Dosage: UNK
     Route: 065
  2. BUSPIRONE HYDROCHLORIDE [Suspect]
     Active Substance: BUSPIRONE HYDROCHLORIDE
     Dosage: 9 TABLETS A DAY,(04 TABLETS IN THE MORNING AND 05 TABLETS AT NIGHT)
     Route: 048
     Dates: start: 20221101
  3. LAMICTAL [Concomitant]
     Active Substance: LAMOTRIGINE
     Indication: Seizure
     Dosage: UNK, BID
     Route: 048
     Dates: start: 2009
  4. GABAPENTIN [Concomitant]
     Active Substance: GABAPENTIN
     Indication: Headache
     Dosage: UNK, QD (SINCE 07-08 YEARS)
     Route: 065
  5. ONFI [Concomitant]
     Active Substance: CLOBAZAM
     Indication: Seizure
     Dosage: UNK, QD (4 TO 5 YEARS)
     Route: 065
  6. ONFI [Concomitant]
     Active Substance: CLOBAZAM
     Indication: Tremor
  7. MELATONIN [Concomitant]
     Active Substance: MELATONIN
     Indication: Sleep disorder
     Dosage: UNK, QD (FROM 27 YEARS) (FOR SLEEP)
     Route: 065
  8. VITAMIN E [Concomitant]
     Active Substance: .ALPHA.-TOCOPHEROL
     Indication: Seizure
     Dosage: UNK, QD (400 IU GEL CAPSULES SINCE 30 YEARS)
     Route: 065
  9. PRILOSEC [Concomitant]
     Active Substance: OMEPRAZOLE MAGNESIUM
     Indication: Reflux gastritis
     Dosage: UNK, BID (FOR REFLUX FOR THE PAST 8 YEARS)
     Route: 065

REACTIONS (1)
  - Behaviour disorder [Recovered/Resolved]
